FAERS Safety Report 5366021-X (Version None)
Quarter: 2007Q2

REPORT INFORMATION
  Report Type: 
  Country: None (occurrence: None)
  Receive Date: 20070611
  Receipt Date: 20070223
  Transmission Date: 20071010
  Serious: Yes (Death, Other)
  Sender: FDA-Public Use
  Company Number: USA-2007-0026597

PATIENT
  Age: 23 Year
  Sex: Female
  Weight: 53.1 kg

DRUGS (12)
  1. OXYCONTIN [Suspect]
     Indication: DRUG ABUSER
  2. MORPHINE [Suspect]
     Indication: DRUG ABUSER
  3. HYDROMORPHONE HCL [Suspect]
     Indication: DRUG ABUSER
  4. XANAX [Suspect]
     Indication: DRUG ABUSER
  5. COCAINE (COCAINE) [Suspect]
     Indication: DRUG ABUSER
  6. COCAETHYLENE [Suspect]
     Indication: DRUG ABUSER
  7. DILTIAZEM [Suspect]
     Indication: DRUG ABUSER
  8. DIPHENHYDRAMINE HCL [Suspect]
     Indication: DRUG ABUSER
  9. METHORPHAN [Suspect]
     Indication: DRUG ABUSER
  10. ACETAMINOPHEN [Suspect]
     Indication: DRUG ABUSER
  11. METAXALONE [Suspect]
     Indication: DRUG ABUSER
  12. TRAMADOL HCL [Suspect]
     Indication: DRUG ABUSER

REACTIONS (3)
  - LOSS OF CONSCIOUSNESS [None]
  - MULTIPLE DRUG OVERDOSE ACCIDENTAL [None]
  - SUBSTANCE ABUSE [None]
